FAERS Safety Report 17695782 (Version 1)
Quarter: 2020Q2

REPORT INFORMATION
  Report Type: Spontaneous
  Country: US (occurrence: US)
  Receive Date: 20200422
  Receipt Date: 20200422
  Transmission Date: 20200714
  Serious: Yes (Other)
  Sender: FDA-Public Use
  Company Number: US-AUROBINDO-AUR-APL-2020-018942

PATIENT
  Age: 57 Year
  Sex: Male

DRUGS (1)
  1. MOXIFLOXACIN. [Suspect]
     Active Substance: MOXIFLOXACIN
     Indication: NEISSERIA INFECTION
     Dosage: 400 MILLIGRAM, ONCE A DAY (FOR 2 WEEKS)
     Route: 048

REACTIONS (3)
  - Paranoia [Unknown]
  - Drug intolerance [Unknown]
  - Agitation [Unknown]
